FAERS Safety Report 24765407 (Version 1)
Quarter: 2024Q4

REPORT INFORMATION
  Report Type: Report from Study
  Country: KR (occurrence: KR)
  Receive Date: 20241223
  Receipt Date: 20241223
  Transmission Date: 20250115
  Serious: Yes (Other)
  Sender: NOVARTIS
  Company Number: KR-002147023-NVSC2024KR227410

PATIENT
  Age: 88 Year
  Sex: Male

DRUGS (3)
  1. BEOVU [Suspect]
     Active Substance: BROLUCIZUMAB-DBLL
     Indication: Neovascular age-related macular degeneration
     Dosage: 6 MG
     Route: 031
     Dates: start: 20231103, end: 20231103
  2. LEVOFLOXACIN [Concomitant]
     Active Substance: LEVOFLOXACIN
     Indication: Evidence based treatment
     Dosage: 1 DRP, 6 (OPHTHALMIC SOLUTION)
     Route: 047
     Dates: start: 20231103, end: 20231108
  3. Hyabak [Concomitant]
     Indication: Dry eye
     Dosage: UNK
     Route: 065
     Dates: start: 20181031

REACTIONS (1)
  - Idiopathic orbital inflammation [Recovered/Resolved]

NARRATIVE: CASE EVENT DATE: 20240103
